FAERS Safety Report 11220451 (Version 2)
Quarter: 2015Q3

REPORT INFORMATION
  Report Type: Spontaneous
  Country: IT (occurrence: IT)
  Receive Date: 20150625
  Receipt Date: 20150703
  Transmission Date: 20151125
  Serious: Yes (Other)
  Sender: FDA-Public Use
  Company Number: PHHY2015IT073070

PATIENT
  Age: 24 Year
  Sex: Female
  Weight: 48 kg

DRUGS (3)
  1. BUTYRIC ACID [Concomitant]
     Active Substance: BUTYRIC ACID
     Indication: PROCTITIS
     Route: 065
  2. AZITHROMYCIN [Suspect]
     Active Substance: AZITHROMYCIN ANHYDROUS
     Indication: DIAGNOSTIC ASPIRATION
     Dosage: 500 MG, QD
     Route: 048
     Dates: start: 20150611
  3. COUMADIN [Concomitant]
     Active Substance: WARFARIN SODIUM
     Indication: DEEP VEIN THROMBOSIS
     Route: 065

REACTIONS (3)
  - Gastrointestinal sounds abnormal [Not Recovered/Not Resolved]
  - Abdominal distension [Not Recovered/Not Resolved]
  - Constipation [Not Recovered/Not Resolved]

NARRATIVE: CASE EVENT DATE: 20150611
